FAERS Safety Report 4689807-3 (Version None)
Quarter: 2005Q2

REPORT INFORMATION
  Report Type: 
  Country: None (occurrence: None)
  Receive Date: 20050613
  Receipt Date: 20050613
  Transmission Date: 20051028
  Serious: Yes (Life-Threatening, Disabling)
  Sender: FDA-Public Use
  Company Number: None

PATIENT
  Age: 48 Year
  Sex: Female
  Weight: 117.9352 kg

DRUGS (3)
  1. NEURONTIN [Suspect]
     Indication: MIGRAINE
  2. NEURONTIN [Suspect]
     Indication: POST-TRAUMATIC STRESS DISORDER
  3. SEROQUEL [Suspect]

REACTIONS (2)
  - INCORRECT DOSE ADMINISTERED [None]
  - SUICIDE ATTEMPT [None]
